FAERS Safety Report 6575096-1 (Version None)
Quarter: 2010Q1

REPORT INFORMATION
  Report Type: 
  Country: None (occurrence: None)
  Receive Date: 20100209
  Receipt Date: 20100129
  Transmission Date: 20100710
  Serious: Yes (Hospitalization, Other)
  Sender: FDA-Public Use
  Company Number: DK-JNJFOC-20091104309

PATIENT
  Sex: Male
  Weight: 100 kg

DRUGS (2)
  1. REMICADE [Suspect]
     Indication: PSORIASIS
     Dosage: 8 INFUSIONS ON UNSPECIFIED DATES
     Route: 042
  2. METHOTREXATE [Concomitant]
     Indication: PSORIASIS

REACTIONS (6)
  - BACK PAIN [None]
  - CHILLS [None]
  - INFUSION RELATED REACTION [None]
  - PYREXIA [None]
  - RESPIRATORY DISORDER [None]
  - SERUM SICKNESS-LIKE REACTION [None]
